FAERS Safety Report 5974218-0 (Version None)
Quarter: 2008Q4

REPORT INFORMATION
  Report Type: 
  Country: None (occurrence: None)
  Receive Date: 20081128
  Receipt Date: 20081114
  Transmission Date: 20090506
  Serious: Yes (Other)
  Sender: FDA-Public Use
  Company Number: JPI-P-005328

PATIENT
  Age: 77 Year
  Sex: Female

DRUGS (7)
  1. LUVOX [Suspect]
     Indication: DEPRESSION
     Dosage: ORAL
     Route: 048
  2. TRAZODONE HCL [Suspect]
     Indication: DEPRESSION
     Dosage: ORAL
     Route: 048
  3. PROPOFOL [Suspect]
     Indication: GENERAL ANAESTHESIA
  4. FENTANYL-100 [Concomitant]
  5. ANAPAIN [Concomitant]
  6. REMIFENTANIL [Concomitant]
  7. VECURONIUM BROMIDE [Concomitant]

REACTIONS (2)
  - DELAYED RECOVERY FROM ANAESTHESIA [None]
  - DRUG INTERACTION [None]
